FAERS Safety Report 8891240 (Version 1)
Quarter: 2012Q4

REPORT INFORMATION
  Report Type: 
  Country: US (occurrence: US)
  Receive Date: 20121107
  Receipt Date: 20121107
  Transmission Date: 20130627
  Serious: No
  Sender: FDA-Public Use
  Company Number: US-009507513-1211USA002110

PATIENT
  Age: 67 Year
  Sex: Female

DRUGS (6)
  1. JANUVIA [Suspect]
     Indication: TYPE 2 DIABETES MELLITUS
     Dosage: 100 mg, 1 time daily
  2. METFORMIN [Concomitant]
  3. GLYBURIDE [Concomitant]
  4. VYTORIN [Concomitant]
  5. ZETIA [Concomitant]
  6. IMDUR [Concomitant]

REACTIONS (1)
  - Blood glucose increased [Not Recovered/Not Resolved]
